FAERS Safety Report 17280433 (Version 1)
Quarter: 2020Q1

REPORT INFORMATION
  Report Type: Spontaneous
  Country: GB (occurrence: GB)
  Receive Date: 20200117
  Receipt Date: 20200117
  Transmission Date: 20200409
  Serious: Yes (Other)
  Sender: FDA-Public Use
  Company Number: GB-AMGEN-GBRSP2020006064

PATIENT
  Age: 26 Year
  Sex: Female

DRUGS (1)
  1. PROCORALAN [Suspect]
     Active Substance: IVABRADINE
     Indication: HEART RATE INCREASED
     Dosage: 2 DOSAGE FORM, QD
     Route: 048
     Dates: start: 20191226, end: 20200101

REACTIONS (2)
  - Off label use [Unknown]
  - Chest pain [Recovered/Resolved]

NARRATIVE: CASE EVENT DATE: 20191226
